FAERS Safety Report 15964356 (Version 1)
Quarter: 2019Q1

REPORT INFORMATION
  Report Type: Spontaneous
  Country: FR (occurrence: FR)
  Receive Date: 20190215
  Receipt Date: 20190215
  Transmission Date: 20190417
  Serious: Yes (Life-Threatening, Hospitalization, Other)
  Sender: FDA-Public Use
  Company Number: FR-AUROBINDO-AUR-APL-2019-008227

PATIENT

DRUGS (4)
  1. CEFTAZIDIME ARROW (CEFTAZIDIME) [Interacting]
     Active Substance: CEFTAZIDIME
     Indication: PRODUCT USED FOR UNKNOWN INDICATION
     Dosage: 1 GRAM, ONCE A DAY
     Route: 042
     Dates: start: 20170807, end: 20170811
  2. ZITHROMAX [Interacting]
     Active Substance: AZITHROMYCIN DIHYDRATE
     Indication: LUNG INFECTION
     Dosage: 250 MILLIGRAM, ONCE A DAY
     Route: 048
     Dates: start: 20170808, end: 20170811
  3. CIPROFLOXACIN HYDROCHLORIDE ARROW FILM-COATED TABLET 500MG [Suspect]
     Active Substance: CIPROFLOXACIN HYDROCHLORIDE
     Indication: LUNG INFECTION
     Dosage: 500 MILLIGRAM, ONCE A DAY
     Route: 048
     Dates: start: 20170807, end: 20170811
  4. PREVISCAN (PENTOXIFYLLINE) [Interacting]
     Active Substance: PENTOXIFYLLINE
     Indication: ATRIAL FIBRILLATION
     Dosage: 30 MILLIGRAM, ONCE A DAY
     Route: 048
     Dates: end: 20170810

REACTIONS (2)
  - Extradural haematoma [Recovered/Resolved with Sequelae]
  - International normalised ratio increased [Recovered/Resolved]

NARRATIVE: CASE EVENT DATE: 20170810
